FAERS Safety Report 7878584-0 (Version None)
Quarter: 2011Q4

REPORT INFORMATION
  Report Type: 
  Country: None (occurrence: None)
  Receive Date: 20111101
  Receipt Date: 20111101
  Transmission Date: 20120403
  Serious: Yes (Life-Threatening, Hospitalization)
  Sender: FDA-Public Use
  Company Number: None

PATIENT
  Sex: Male
  Weight: 55 kg

DRUGS (11)
  1. MULTIVITAMIN WITH IRON [Concomitant]
     Route: 048
  2. BENADRYL [Concomitant]
     Route: 048
  3. ACETAMINOPHEN AND HYDROCODONE BITARTRATE [Concomitant]
     Route: 048
  4. ESCITALOPRAM [Concomitant]
     Route: 048
  5. DIGOXIN [Concomitant]
     Route: 048
  6. LASIX [Concomitant]
     Route: 048
  7. LORAZEPAM [Concomitant]
     Route: 048
  8. DRONEDARONE HCL [Suspect]
     Indication: ATRIAL FIBRILLATION
     Dosage: 400 MG
     Route: 048
     Dates: start: 20110919, end: 20111005
  9. METOPROLOL TARTRATE [Concomitant]
     Route: 048
  10. FLOLAN AT 24 NG/KG PER MINUTE [Concomitant]
  11. REVATIO [Concomitant]
     Route: 048

REACTIONS (4)
  - VENTRICULAR TACHYCARDIA [None]
  - VENTRICULAR FIBRILLATION [None]
  - BUNDLE BRANCH BLOCK RIGHT [None]
  - CIRCULATORY COLLAPSE [None]
